FAERS Safety Report 23863688 (Version 1)
Quarter: 2024Q2

REPORT INFORMATION
  Report Type: Spontaneous
  Country: CZ (occurrence: CZ)
  Receive Date: 20240516
  Receipt Date: 20240516
  Transmission Date: 20240716
  Serious: Yes (Life-Threatening, Hospitalization, Congenital Anomaly, Other)
  Sender: FDA-Public Use
  Company Number: None

PATIENT

DRUGS (3)
  1. LAGEVRIO [Suspect]
     Active Substance: MOLNUPIRAVIR
     Indication: COVID-19
     Dosage: UNK
     Dates: start: 20231214, end: 20231218
  2. AZITHROMYCIN [Suspect]
     Active Substance: AZITHROMYCIN
     Indication: Cough
     Dosage: UNK
     Dates: start: 20231222, end: 20231228
  3. AZITHROMYCIN [Suspect]
     Active Substance: AZITHROMYCIN
     Indication: COVID-19

REACTIONS (6)
  - Cerebellar hypoplasia [Unknown]
  - Maternal exposure during pregnancy [Unknown]
  - Hydrocephalus [Unknown]
  - Talipes [Unknown]
  - Microgenia [Unknown]
  - Congenital central nervous system anomaly [Unknown]
